FAERS Safety Report 8556441-4 (Version None)
Quarter: 2012Q3

REPORT INFORMATION
  Report Type: 
  Country: None (occurrence: None)
  Receive Date: 20120801
  Receipt Date: 20120727
  Transmission Date: 20120928
  Serious: Yes (Other)
  Sender: FDA-Public Use
  Company Number: PHHY2012JP065068

PATIENT

DRUGS (2)
  1. ANTIMICROBIAL [Interacting]
  2. NEORAL [Suspect]
     Indication: APLASTIC ANAEMIA
     Route: 048

REACTIONS (2)
  - DRUG INTERACTION [None]
  - DRUG LEVEL FLUCTUATING [None]
